FAERS Safety Report 7782582-5 (Version None)
Quarter: 2011Q3

REPORT INFORMATION
  Report Type: 
  Country: None (occurrence: None)
  Receive Date: 20110927
  Receipt Date: 20110927
  Transmission Date: 20111222
  Serious: Yes (Other)
  Sender: FDA-Public Use
  Company Number: None

PATIENT
  Sex: Female
  Weight: 86.637 kg

DRUGS (1)
  1. LYRICA [Suspect]
     Indication: TRIGEMINAL NEURALGIA
     Dosage: LYRICA 150MG 4X DAY CAPSUL
     Dates: start: 20100101, end: 20101201

REACTIONS (2)
  - INSOMNIA [None]
  - SUICIDAL IDEATION [None]
